FAERS Safety Report 21266070 (Version 2)
Quarter: 2022Q3

REPORT INFORMATION
  Report Type: Spontaneous
  Country: US (occurrence: US)
  Receive Date: 20220829
  Receipt Date: 20220829
  Transmission Date: 20221027
  Serious: Yes (Other)
  Sender: FDA-Public Use
  Company Number: US-PFIZER INC-202201070095

PATIENT
  Age: 38 Year
  Sex: Male

DRUGS (1)
  1. VORICONAZOLE [Suspect]
     Active Substance: VORICONAZOLE
     Indication: Pulmonary blastomycosis
     Dosage: UNK

REACTIONS (2)
  - Neurotoxicity [Unknown]
  - Off label use [Unknown]
